FAERS Safety Report 6481034-2 (Version None)
Quarter: 2009Q4

REPORT INFORMATION
  Report Type: 
  Country: None (occurrence: None)
  Receive Date: 20091208
  Receipt Date: 20090307
  Transmission Date: 20100525
  Serious: No
  Sender: FDA-Public Use
  Company Number: US-AMGEN-KDL337436

PATIENT
  Sex: Female

DRUGS (2)
  1. ENBREL [Suspect]
     Indication: JUVENILE ARTHRITIS
     Route: 058
     Dates: start: 20090226
  2. METHOTREXATE [Concomitant]
     Route: 030
     Dates: start: 20081223

REACTIONS (2)
  - PYREXIA [None]
  - RHINORRHOEA [None]
